APPROVED DRUG PRODUCT: ISOFLURANE
Active Ingredient: ISOFLURANE
Strength: 99.9%
Dosage Form/Route: LIQUID;INHALATION
Application: A074502 | Product #001 | TE Code: AN
Applicant: PIRAMAL PHARMA LTD
Approved: Jun 27, 1995 | RLD: No | RS: No | Type: RX